FAERS Safety Report 10476848 (Version 1)
Quarter: 2014Q3

REPORT INFORMATION
  Report Type: Spontaneous
  Country: GB (occurrence: GB)
  Receive Date: 20140926
  Receipt Date: 20140926
  Transmission Date: 20150326
  Serious: Yes (Hospitalization)
  Sender: FDA-Public Use
  Company Number: GB-AUROBINDO-AUR-APL-2014-10180

PATIENT
  Sex: Female

DRUGS (1)
  1. TRAMADOL [Suspect]
     Active Substance: TRAMADOL
     Indication: PRODUCT USED FOR UNKNOWN INDICATION
     Route: 065

REACTIONS (11)
  - Miosis [Unknown]
  - Dry mouth [Unknown]
  - Rash [Unknown]
  - Nausea [Unknown]
  - Pruritus [Unknown]
  - Drug administration error [Unknown]
  - Toxicity to various agents [Unknown]
  - Overdose [Unknown]
  - Somnolence [Unknown]
  - Vomiting [Unknown]
  - Thirst [Unknown]
